FAERS Safety Report 20661251 (Version 2)
Quarter: 2022Q2

REPORT INFORMATION
  Report Type: Spontaneous
  Country: US (occurrence: US)
  Receive Date: 20220401
  Receipt Date: 20220401
  Transmission Date: 20220721
  Serious: Yes (Other)
  Sender: FDA-Public Use
  Company Number: US-ABBVIE-22K-163-4333229-00

PATIENT
  Sex: Male

DRUGS (1)
  1. IMBRUVICA [Suspect]
     Active Substance: IBRUTINIB
     Indication: Waldenstrom^s macroglobulinaemia
     Dosage: THREE DAYS ON AND ONE DAY OFF
     Route: 048

REACTIONS (11)
  - Oesophageal stenosis [Unknown]
  - Urostomy [Unknown]
  - Immunodeficiency [Unknown]
  - Stoma complication [Unknown]
  - Dyspnoea [Unknown]
  - Dysphagia [Unknown]
  - Injury [Unknown]
  - Chronic obstructive pulmonary disease [Unknown]
  - Lung disorder [Unknown]
  - Respiratory disorder [Unknown]
  - Hypophagia [Unknown]
